FAERS Safety Report 14849448 (Version 1)
Quarter: 2018Q2

REPORT INFORMATION
  Report Type: Report from Study
  Country: CO (occurrence: CO)
  Receive Date: 20180504
  Receipt Date: 20180504
  Transmission Date: 20180711
  Serious: Yes (Hospitalization)
  Sender: FDA-Public Use
  Company Number: CO-INCYTE CORPORATION-2018IN003749

PATIENT

DRUGS (1)
  1. JAKAVI [Suspect]
     Active Substance: RUXOLITINIB
     Indication: MYELOFIBROSIS
     Dosage: 20 MG, Q12H (EVERY 12 HOURS)
     Route: 048
     Dates: start: 20171019, end: 20180412

REACTIONS (4)
  - Pyrexia [Not Recovered/Not Resolved]
  - Vision blurred [Unknown]
  - Splenomegaly [Unknown]
  - Dizziness [Unknown]
